FAERS Safety Report 6747010-7 (Version None)
Quarter: 2010Q2

REPORT INFORMATION
  Report Type: 
  Country: None (occurrence: None)
  Receive Date: 20100528
  Receipt Date: 20100518
  Transmission Date: 20101027
  Serious: Yes (Other)
  Sender: FDA-Public Use
  Company Number: PHHY2010AU33589

PATIENT
  Age: 47 Year
  Sex: Male

DRUGS (1)
  1. ZOMETA [Suspect]
     Dosage: 4 MG, QMO

REACTIONS (9)
  - ABSCESS DRAINAGE [None]
  - ABSCESS JAW [None]
  - BONE DISORDER [None]
  - BONE LESION EXCISION [None]
  - DISABILITY [None]
  - OSTEONECROSIS OF JAW [None]
  - PAIN IN JAW [None]
  - PRIMARY SEQUESTRUM [None]
  - SEQUESTRECTOMY [None]
